FAERS Safety Report 6443054-3 (Version None)
Quarter: 2009Q4

REPORT INFORMATION
  Report Type: 
  Country: None (occurrence: None)
  Receive Date: 20091117
  Receipt Date: 20091109
  Transmission Date: 20100525
  Serious: Yes (Hospitalization)
  Sender: FDA-Public Use
  Company Number: US-B.I. PHARMACEUTICALS,INC./RIDGEFIELD-2009-BP-12981BP

PATIENT
  Age: 49 Year
  Sex: Female

DRUGS (4)
  1. MIRAPEX [Suspect]
     Indication: FIBROMYALGIA
     Dosage: 1.5 MG
     Route: 048
     Dates: start: 20040101
  2. LORAZEPAM [Concomitant]
     Indication: ANXIETY
  3. PREMARIN [Concomitant]
     Indication: MENOPAUSE
  4. THYROID MEDICINE [Concomitant]
     Indication: HYPOTHYROIDISM

REACTIONS (14)
  - ASTHENIA [None]
  - BLOOD PRESSURE ABNORMAL [None]
  - BODY TEMPERATURE DECREASED [None]
  - CHEST PAIN [None]
  - COUGH [None]
  - DISTURBANCE IN ATTENTION [None]
  - DIZZINESS [None]
  - DYSPNOEA [None]
  - FALL [None]
  - MYALGIA [None]
  - PANIC ATTACK [None]
  - PULSE ABNORMAL [None]
  - UNRESPONSIVE TO STIMULI [None]
  - VISUAL IMPAIRMENT [None]
